FAERS Safety Report 17614422 (Version 1)
Quarter: 2020Q2

REPORT INFORMATION
  Report Type: Spontaneous
  Country: DE (occurrence: DE)
  Receive Date: 20200402
  Receipt Date: 20200402
  Transmission Date: 20200713
  Serious: Yes (Other)
  Sender: FDA-Public Use
  Company Number: DE-ALKEM LABORATORIES LIMITED-DE-ALKEM-2019-04990

PATIENT
  Age: 38 Year
  Sex: Female
  Weight: 180 kg

DRUGS (4)
  1. QUETIAPINE FUMARATE. [Suspect]
     Active Substance: QUETIAPINE FUMARATE
     Indication: BORDERLINE PERSONALITY DISORDER
     Dosage: 150 MG/MG, OD
     Route: 048
     Dates: start: 20181012, end: 20181012
  2. PROTAPHANE [Concomitant]
     Active Substance: INSULIN HUMAN
     Indication: TYPE 2 DIABETES MELLITUS
     Dosage: UNKNOWN
     Route: 058
     Dates: start: 20181012, end: 20181012
  3. VALDOXAN [Suspect]
     Active Substance: AGOMELATINE
     Indication: BORDERLINE PERSONALITY DISORDER
     Dosage: 25 MG/MG, OD
     Route: 048
     Dates: start: 20180203, end: 20181012
  4. ACTRAPID [Concomitant]
     Active Substance: INSULIN HUMAN
     Indication: TYPE 2 DIABETES MELLITUS
     Dosage: UNKNOWN
     Route: 058
     Dates: start: 20181012, end: 20181012

REACTIONS (1)
  - Exposure during pregnancy [Unknown]
